FAERS Safety Report 6483892-4 (Version None)
Quarter: 2009Q4

REPORT INFORMATION
  Report Type: 
  Country: None (occurrence: None)
  Receive Date: 20091208
  Receipt Date: 20091208
  Transmission Date: 20100525
  Serious: Yes (Other)
  Sender: FDA-Public Use
  Company Number: None

PATIENT
  Age: 38 Year
  Sex: Female
  Weight: 70.7611 kg

DRUGS (1)
  1. LUTERA / WATSON [Suspect]
     Indication: CONTRACEPTION
     Dosage: 1 TAB Q DAY PO
     Route: 048
     Dates: start: 20070401, end: 20081001

REACTIONS (1)
  - PREGNANCY TEST POSITIVE [None]
